FAERS Safety Report 10148938 (Version 2)
Quarter: 2014Q2

REPORT INFORMATION
  Report Type: Report from Study
  Country: US (occurrence: US)
  Receive Date: 20140502
  Receipt Date: 20140513
  Transmission Date: 20141212
  Serious: Yes (Death)
  Sender: FDA-Public Use
  Company Number: US-BIOGENIDEC-2014BI041377

PATIENT
  Age: 66 Year
  Sex: Female

DRUGS (13)
  1. AVONEX [Suspect]
     Indication: MULTIPLE SCLEROSIS
     Route: 030
     Dates: start: 19980101
  2. AVONEX [Suspect]
     Indication: MULTIPLE SCLEROSIS
     Route: 030
     Dates: start: 20140218, end: 201404
  3. ADDERALL [Concomitant]
  4. BACLOFEN [Concomitant]
  5. CALCIUM [Concomitant]
  6. VITAMIN D3 [Concomitant]
  7. CIPRO HC [Concomitant]
  8. DELZICOL [Concomitant]
  9. FISH OIL [Concomitant]
  10. METAMUCIL [Concomitant]
  11. OMEGA 3 [Concomitant]
  12. VITAMIN C [Concomitant]
  13. ROSE HIPS [Concomitant]

REACTIONS (1)
  - Death [Fatal]
